FAERS Safety Report 9674950 (Version 2)
Quarter: 2013Q4

REPORT INFORMATION
  Report Type: Report from Study
  Country: GB (occurrence: VN)
  Receive Date: 20131107
  Receipt Date: 20131120
  Transmission Date: 20140711
  Serious: Yes (Hospitalization)
  Sender: FDA-Public Use
  Company Number: GB-JNJFOC-20131019298

PATIENT
  Age: 54 Year
  Sex: Male
  Weight: 74 kg

DRUGS (10)
  1. USTEKINUMAB [Suspect]
     Indication: PSORIASIS
     Route: 058
     Dates: start: 20130314
  2. ALLOPURINOL [Concomitant]
     Route: 065
     Dates: start: 20130920
  3. ALLOPURINOL [Concomitant]
     Route: 065
     Dates: start: 20110420, end: 20130720
  4. OMEPRAZOLE [Concomitant]
     Route: 065
     Dates: start: 20100930
  5. QUETIAPINE [Concomitant]
     Route: 065
     Dates: start: 20080612
  6. ZOPICLONE [Concomitant]
     Route: 065
     Dates: start: 19950101
  7. VITAMIN D [Concomitant]
     Route: 065
     Dates: start: 20120109
  8. TRAMADOL [Concomitant]
     Route: 065
     Dates: start: 20121101
  9. VITAMIN B12 [Concomitant]
     Route: 065
     Dates: start: 20120901
  10. COLCHICINA [Concomitant]
     Route: 065
     Dates: start: 20120109

REACTIONS (4)
  - Sepsis [Recovered/Resolved]
  - Septic shock [Unknown]
  - Limb injury [Unknown]
  - Cellulitis [Unknown]
